FAERS Safety Report 19175950 (Version 2)
Quarter: 2021Q2

REPORT INFORMATION
  Report Type: Spontaneous
  Country: US (occurrence: US)
  Receive Date: 20210423
  Receipt Date: 20210526
  Transmission Date: 20210717
  Serious: No
  Sender: FDA-Public Use
  Company Number: US-INCYTE CORPORATION-2021IN002338

PATIENT

DRUGS (3)
  1. JAKAFI [Suspect]
     Active Substance: RUXOLITINIB
     Dosage: 10 UNK (TAKE ONE?HALF TABLET MY MOUTH ONE TIME DAILY)
     Route: 048
     Dates: start: 20200708, end: 20210515
  2. JAKAFI [Suspect]
     Active Substance: RUXOLITINIB
     Dosage: 10 MILLIGRAM, BID (TAKE ONE HALF TABLET BY MOUTH 2 TIMES DAILY AS DIRECTED BY PRESCRIBER)
     Route: 048
     Dates: start: 20200708
  3. JAKAFI [Suspect]
     Active Substance: RUXOLITINIB
     Dosage: 10 UNK (TAKE ONE?HALF TABLET MY MOUTH ONE TIME DAILY)
     Route: 048
     Dates: start: 20200708, end: 20210515

REACTIONS (2)
  - Wrong technique in product usage process [Unknown]
  - Weight increased [Unknown]
